FAERS Safety Report 9122356 (Version 2)
Quarter: 2013Q1

REPORT INFORMATION
  Report Type: Report from Study
  Country: FR (occurrence: FR)
  Receive Date: 20130227
  Receipt Date: 20130314
  Transmission Date: 20140127
  Serious: Yes (Death, Other)
  Sender: FDA-Public Use
  Company Number: FR-PFIZER INC-2013066444

PATIENT
  Age: 76 Year
  Sex: Female
  Weight: 150 kg

DRUGS (8)
  1. TORISEL [Suspect]
     Indication: MANTLE CELL LYMPHOMA
     Dosage: 175 MG (WEEKLY)
     Dates: start: 20110510, end: 20110521
  2. TORISEL [Suspect]
     Dosage: 75 MG (WEEKLY)
     Dates: start: 20110531, end: 20111214
  3. PROCORALAN [Concomitant]
     Dosage: UNK
  4. FUROSEMIDE [Concomitant]
     Dosage: UNK
  5. DIFFU K [Concomitant]
     Dosage: UNK
  6. OMEPRAZOLE [Concomitant]
     Dosage: UNK
  7. SERETIDE [Concomitant]
     Indication: CHRONIC OBSTRUCTIVE PULMONARY DISEASE
     Dosage: UNK
     Route: 055
  8. VENTOLINE [Concomitant]
     Indication: CHRONIC OBSTRUCTIVE PULMONARY DISEASE
     Dosage: UNK
     Route: 055

REACTIONS (2)
  - Acute respiratory distress syndrome [Fatal]
  - Asthenia [Recovered/Resolved]
